FAERS Safety Report 7450957-X (Version None)
Quarter: 2011Q2

REPORT INFORMATION
  Report Type: 
  Country: None (occurrence: None)
  Receive Date: 20110502
  Receipt Date: 20110427
  Transmission Date: 20111010
  Serious: Yes (Hospitalization)
  Sender: FDA-Public Use
  Company Number: US-ELI_LILLY_AND_COMPANY-US201104007597

PATIENT
  Age: 82 Year
  Sex: Female

DRUGS (11)
  1. LEVOTHYROXINE SODIUM [Concomitant]
  2. DEXAMETHASONE [Concomitant]
     Dosage: UNK
     Dates: start: 20110101
  3. PEMETREXED [Suspect]
     Indication: NON-SMALL CELL LUNG CANCER
     Dosage: 500 MG/M2, EVERY 3 WEEKS
     Route: 042
     Dates: start: 20110304
  4. CISPLATIN [Suspect]
     Indication: NON-SMALL CELL LUNG CANCER
     Dosage: 75 MG/M2, EVERY 3 WEEKS
     Route: 042
     Dates: start: 20110304
  5. APREPITANT [Concomitant]
     Dosage: UNK
     Dates: start: 20110101
  6. ONDANSETRON HYDROCHLORIDE [Concomitant]
     Dosage: UNK
     Dates: start: 20110120
  7. LANSOPRAZOLE [Concomitant]
  8. SENNA [Concomitant]
  9. FOLIC ACID [Concomitant]
     Dosage: UNK
     Dates: start: 20110101
  10. VITAMIN D [Concomitant]
  11. POTASSIUM CHLORIDE [Concomitant]

REACTIONS (4)
  - ABDOMINAL TENDERNESS [None]
  - DYSPNOEA [None]
  - FATIGUE [None]
  - DIARRHOEA [None]
